FAERS Safety Report 10592671 (Version 1)
Quarter: 2014Q4

REPORT INFORMATION
  Report Type: Spontaneous
  Country: IT (occurrence: None)
  Receive Date: 20141117
  Receipt Date: 20141117
  Transmission Date: 20150529
  Serious: Yes (Death, Hospitalization, Other)
  Sender: FDA-Public Use
  Company Number: 2014COR00124

PATIENT
  Age: 63 Year
  Sex: Male

DRUGS (4)
  1. REPAGLINIDE (REPAGLINIDE) [Concomitant]
     Active Substance: REPAGLINIDE
  2. UNSPECIFIED ANGIOTENSIN-CONVERTING ENZYME INHIBITOR (UNKNOWN) [Concomitant]
  3. ANAGRELIDE (ANAGRELIDE) [Concomitant]
     Active Substance: ANAGRELIDE
  4. METFORMIN (METFORMIN) UNKNOWN, UNKNOWN [Suspect]
     Active Substance: METFORMIN HYDROCHLORIDE
     Indication: TYPE 2 DIABETES MELLITUS
     Dosage: 850 MG, 3X/DAY

REACTIONS (8)
  - Hypoglycaemia [None]
  - Bundle branch block left [None]
  - Dyspnoea [None]
  - Acute kidney injury [None]
  - Lactic acidosis [None]
  - Toxicity to various agents [None]
  - Tachycardia [None]
  - Ventricular hypokinesia [None]
